FAERS Safety Report 24282549 (Version 2)
Quarter: 2025Q4

REPORT INFORMATION
  Report Type: Spontaneous
  Country: US (occurrence: US)
  Receive Date: 20240904
  Receipt Date: 20251008
  Transmission Date: 20260117
  Serious: No
  Sender: BAXTER
  Company Number: US-BAXTER-2024BAX024189

PATIENT

DRUGS (2)
  1. REGADENOSON [Suspect]
     Active Substance: REGADENOSON
     Dosage: (SINGLE-DOSE 5ML)
  2. REGADENOSON [Suspect]
     Active Substance: REGADENOSON
     Dosage: (SINGLE-DOSE 5ML)

REACTIONS (1)
  - No adverse event [Unknown]
